FAERS Safety Report 9975968 (Version 4)
Quarter: 2018Q2

REPORT INFORMATION
  Report Type: Report from Study
  Country: None (occurrence: US)
  Receive Date: 20140306
  Receipt Date: 20180412
  Transmission Date: 20180711
  Serious: Yes (Hospitalization)
  Sender: FDA-Public Use
  Company Number: US-ABBVIE-13P-163-1137088-00

PATIENT
  Sex: Female

DRUGS (1)
  1. CREON [Suspect]
     Active Substance: PANCRELIPASE AMYLASE\PANCRELIPASE LIPASE\PANCRELIPASE PROTEASE
     Indication: PANCREATIC FAILURE
     Route: 048

REACTIONS (8)
  - Frustration tolerance decreased [Unknown]
  - Food craving [Unknown]
  - Crying [Unknown]
  - Pain [Unknown]
  - Food intolerance [Unknown]
  - Economic problem [Unknown]
  - Emotional distress [Unknown]
  - Pancreatitis [Unknown]
